FAERS Safety Report 23413257 (Version 1)
Quarter: 2024Q1

REPORT INFORMATION
  Report Type: Spontaneous
  Country: US (occurrence: US)
  Receive Date: 20240117
  Receipt Date: 20240117
  Transmission Date: 20240410
  Serious: Yes (Other)
  Sender: FDA-Public Use
  Company Number: US-NOVOPROD-1135053

PATIENT
  Sex: Female

DRUGS (2)
  1. OZEMPIC [Suspect]
     Active Substance: SEMAGLUTIDE
     Dosage: 2 MG
     Route: 058
     Dates: start: 2022, end: 2023
  2. OZEMPIC [Suspect]
     Active Substance: SEMAGLUTIDE
     Indication: Product used for unknown indication
     Dosage: 1 MG
     Route: 058

REACTIONS (5)
  - Ileus paralytic [Recovered/Resolved]
  - Wrong technique in product usage process [Unknown]
  - Abdominal discomfort [Recovered/Resolved]
  - Flatulence [Unknown]
  - Eructation [Recovered/Resolved]

NARRATIVE: CASE EVENT DATE: 20230101
